FAERS Safety Report 6861085-6 (Version None)
Quarter: 2010Q3

REPORT INFORMATION
  Report Type: 
  Country: None (occurrence: None)
  Receive Date: 20100720
  Receipt Date: 20100715
  Transmission Date: 20110219
  Serious: Yes (Death)
  Sender: FDA-Public Use
  Company Number: US-CELGENEUS-163-21880-10062386

PATIENT
  Sex: Male

DRUGS (2)
  1. REVLIMID [Suspect]
     Route: 048
     Dates: start: 20100310, end: 20100314
  2. VIDAZA [Suspect]
     Route: 051
     Dates: start: 20100305, end: 20100509

REACTIONS (1)
  - ACUTE MYELOID LEUKAEMIA [None]
